FAERS Safety Report 5338958-9 (Version None)
Quarter: 2007Q2

REPORT INFORMATION
  Report Type: 
  Country: None (occurrence: None)
  Receive Date: 20070405
  Receipt Date: 20061115
  Transmission Date: 20071010
  Serious: No
  Sender: FDA-Public Use
  Company Number: US200611003654

PATIENT
  Sex: Female

DRUGS (1)
  1. CYMBALTA [Suspect]
     Indication: DIABETIC NEUROPATHY
     Dosage: 60 MG
     Dates: start: 20060901

REACTIONS (1)
  - DISTURBANCE IN SEXUAL AROUSAL [None]
